FAERS Safety Report 17157796 (Version 1)
Quarter: 2019Q4

REPORT INFORMATION
  Report Type: Spontaneous
  Country: US (occurrence: US)
  Receive Date: 20191216
  Receipt Date: 20191216
  Transmission Date: 20200122
  Serious: No
  Sender: FDA-Public Use
  Company Number: US-ENDO PHARMACEUTICALS INC-2019-106803

PATIENT
  Age: 42 Year
  Sex: Male
  Weight: 83.9 kg

DRUGS (5)
  1. DOLOPHINE [Concomitant]
     Active Substance: METHADONE HYDROCHLORIDE
     Indication: PAIN
  2. XIAFLEX [Suspect]
     Active Substance: COLLAGENASE CLOSTRIDIUM HISTOLYTICUM
     Dosage: UNK UNKNOWN, UNKNOWN CYCLE, 1ST INJECTION
     Route: 026
     Dates: start: 20190702
  3. XIAFLEX [Suspect]
     Active Substance: COLLAGENASE CLOSTRIDIUM HISTOLYTICUM
     Dosage: UNK UNKNOWN, UNKNOWN CYCLE, 2ND INJECTION
     Route: 026
     Dates: start: 20190705
  4. VYVANSE [Concomitant]
     Active Substance: LISDEXAMFETAMINE DIMESYLATE
     Indication: ATTENTION DEFICIT/HYPERACTIVITY DISORDER
  5. XIAFLEX [Suspect]
     Active Substance: COLLAGENASE CLOSTRIDIUM HISTOLYTICUM
     Indication: PEYRONIE^S DISEASE
     Dosage: UNK UNKNOWN, 4 TOTAL INJECTIONS
     Route: 026
     Dates: start: 2016, end: 2016

REACTIONS (6)
  - Inappropriate schedule of product administration [Recovered/Resolved]
  - Drug ineffective [Unknown]
  - Peyronie^s disease [Unknown]
  - Injection site swelling [Not Recovered/Not Resolved]
  - Penile contusion [Recovering/Resolving]
  - Penile erythema [Unknown]

NARRATIVE: CASE EVENT DATE: 2016
